FAERS Safety Report 4629129-X (Version None)
Quarter: 2005Q2

REPORT INFORMATION
  Report Type: 
  Country: None (occurrence: None)
  Receive Date: 20050404
  Receipt Date: 20050404
  Transmission Date: 20051028
  Serious: Yes (Life-Threatening, Disabling, Other)
  Sender: FDA-Public Use
  Company Number: None

PATIENT
  Sex: Female
  Weight: 58.0604 kg

DRUGS (3)
  1. ACCUTANE [Suspect]
     Indication: ACNE
     Dosage: 40MG/DAY? ORAL
     Route: 048
     Dates: start: 20000101
  2. PAXIL [Concomitant]
  3. ORTHO TRI-CYCLEN [Concomitant]

REACTIONS (1)
  - COLITIS ULCERATIVE [None]
